FAERS Safety Report 19520621 (Version 9)
Quarter: 2022Q4

REPORT INFORMATION
  Report Type: Report from Study
  Country: CO (occurrence: CO)
  Receive Date: 20210712
  Receipt Date: 20221118
  Transmission Date: 20230113
  Serious: Yes (Life-Threatening, Hospitalization, Other)
  Sender: FDA-Public Use
  Company Number: CO-ABBVIE-21K-036-3948035-00

PATIENT
  Sex: Female
  Weight: 54 kg

DRUGS (6)
  1. HUMIRA [Suspect]
     Active Substance: ADALIMUMAB
     Indication: Crohn^s disease
     Dosage: STRENGTH:40MG
     Route: 058
     Dates: start: 20130517
  2. HUMIRA [Suspect]
     Active Substance: ADALIMUMAB
  3. AZATHIOPRINE [Concomitant]
     Active Substance: AZATHIOPRINE
     Indication: Product used for unknown indication
     Route: 048
     Dates: start: 2017
  4. GABAPENTIN [Suspect]
     Active Substance: GABAPENTIN
     Indication: Adverse event
     Route: 065
     Dates: start: 20220106, end: 20220111
  5. SULFASALAZINE [Concomitant]
     Active Substance: SULFASALAZINE
     Indication: Product used for unknown indication
     Route: 048
     Dates: start: 2017
  6. COVID-19 VACCINE [Concomitant]
     Indication: COVID-19 immunisation
     Route: 030

REACTIONS (56)
  - Anaesthetic complication [Recovered/Resolved]
  - Pancreatic neoplasm [Not Recovered/Not Resolved]
  - Lymph node pain [Not Recovered/Not Resolved]
  - Nervous system disorder [Not Recovered/Not Resolved]
  - Lymphadenopathy [Not Recovered/Not Resolved]
  - Limb injury [Unknown]
  - Intraductal papillary-mucinous carcinoma of pancreas [Not Recovered/Not Resolved]
  - Pancreatic cystadenoma [Unknown]
  - Foaming at mouth [Recovered/Resolved]
  - Noninfective encephalitis [Recovering/Resolving]
  - Precancerous condition [Not Recovered/Not Resolved]
  - Hypertension [Recovering/Resolving]
  - Dysphonia [Not Recovered/Not Resolved]
  - Ankylosing spondylitis [Not Recovered/Not Resolved]
  - Neoplasm [Not Recovered/Not Resolved]
  - Musculoskeletal disorder [Recovering/Resolving]
  - Gastrointestinal disorder [Recovering/Resolving]
  - Walking aid user [Not Recovered/Not Resolved]
  - Opportunistic infection [Unknown]
  - Bedridden [Unknown]
  - Malaise [Unknown]
  - Dysphonia [Not Recovered/Not Resolved]
  - Synovial cyst [Not Recovered/Not Resolved]
  - Gastrointestinal disorder [Recovering/Resolving]
  - Choking [Recovered/Resolved]
  - Lymphadenopathy [Unknown]
  - Neuritis [Recovering/Resolving]
  - Immune system disorder [Unknown]
  - Mental disorder [Recovering/Resolving]
  - Fall [Unknown]
  - Fibromyalgia [Unknown]
  - Mobility decreased [Not Recovered/Not Resolved]
  - Arthropathy [Not Recovered/Not Resolved]
  - Bone disorder [Unknown]
  - Herpes zoster infection neurological [Unknown]
  - Neuralgia [Recovering/Resolving]
  - Depression [Unknown]
  - Influenza [Recovered/Resolved]
  - Abdominal discomfort [Recovering/Resolving]
  - Vomiting [Unknown]
  - Rectal haemorrhage [Unknown]
  - Mood altered [Unknown]
  - Proctalgia [Unknown]
  - Pain in extremity [Not Recovered/Not Resolved]
  - Peripheral arterial occlusive disease [Not Recovered/Not Resolved]
  - Balance disorder [Unknown]
  - Dizziness [Unknown]
  - Hyperhidrosis [Unknown]
  - Gait disturbance [Unknown]
  - Pain [Not Recovered/Not Resolved]
  - Ear pain [Not Recovered/Not Resolved]
  - Motor dysfunction [Not Recovered/Not Resolved]
  - Crohn^s disease [Recovered/Resolved]
  - Post herpetic neuralgia [Unknown]
  - Nausea [Unknown]
  - Peripheral swelling [Not Recovered/Not Resolved]

NARRATIVE: CASE EVENT DATE: 20210101
